FAERS Safety Report 6046940-1 (Version None)
Quarter: 2009Q1

REPORT INFORMATION
  Report Type: 
  Country: None (occurrence: None)
  Receive Date: 20090122
  Receipt Date: 20081127
  Transmission Date: 20090719
  Serious: Yes (Hospitalization)
  Sender: FDA-Public Use
  Company Number: JP-JNJFOC-20081001284

PATIENT
  Sex: Male
  Weight: 45 kg

DRUGS (5)
  1. ITRIZOLE [Suspect]
     Indication: BRONCHOPULMONARY ASPERGILLOSIS
     Dosage: 200 MG TWICE A DAY
     Route: 048
  2. ITRIZOLE [Suspect]
     Route: 041
  3. GASMOTIN [Concomitant]
     Indication: ANOREXIA
     Route: 048
  4. URSO 250 [Concomitant]
     Indication: BILIARY CIRRHOSIS PRIMARY
     Route: 048
  5. COLD MEDICINE [Concomitant]
     Indication: NASOPHARYNGITIS
     Route: 065

REACTIONS (8)
  - DECREASED APPETITE [None]
  - ELECTROCARDIOGRAM QT PROLONGED [None]
  - FATIGUE [None]
  - HEADACHE [None]
  - MALAISE [None]
  - NAUSEA [None]
  - PALPITATIONS [None]
  - PSEUDOALDOSTERONISM [None]
